FAERS Safety Report 5058295-X (Version None)
Quarter: 2006Q2

REPORT INFORMATION
  Report Type: 
  Country: None (occurrence: None)
  Receive Date: 20060622
  Receipt Date: 20060316
  Transmission Date: 20061013
  Serious: Yes (Other)
  Sender: FDA-Public Use
  Company Number: US-JNJFOC-20060205996

PATIENT
  Age: 69 Year
  Sex: Female
  Weight: 63.5036 kg

DRUGS (13)
  1. FENTANYL TRANSDERMAL SYSTEM [Suspect]
     Indication: CANCER PAIN
     Dosage: SEE IMAGE, TRANSDERMAL
     Route: 062
     Dates: start: 20051201, end: 20051201
  2. FENTANYL TRANSDERMAL SYSTEM [Suspect]
     Indication: CANCER PAIN
     Dosage: SEE IMAGE, TRANSDERMAL
     Route: 062
     Dates: start: 20051201, end: 20060101
  3. FENTANYL TRANSDERMAL SYSTEM [Suspect]
     Indication: CANCER PAIN
     Dosage: SEE IMAGE, TRANSDERMAL
     Route: 062
     Dates: start: 20060101, end: 20060101
  4. FENTANYL TRANSDERMAL SYSTEM [Suspect]
     Indication: CANCER PAIN
     Dosage: SEE IMAGE, TRANSDERMAL
     Route: 062
     Dates: start: 20060101, end: 20060208
  5. FENTANYL TRANSDERMAL SYSTEM [Suspect]
     Indication: CANCER PAIN
     Dosage: SEE IMAGE, TRANSDERMAL
     Route: 062
     Dates: start: 20060201, end: 20060309
  6. FENTANYL TRANSDERMAL SYSTEM [Suspect]
     Indication: CANCER PAIN
     Dosage: SEE IMAGE, TRANSDERMAL
     Route: 062
     Dates: start: 20060309, end: 20060314
  7. FENTANYL TRANSDERMAL SYSTEM [Suspect]
     Indication: CANCER PAIN
     Dosage: SEE IMAGE, TRANSDERMAL
     Route: 062
     Dates: start: 20060208
  8. FENTANYL TRANSDERMAL SYSTEM [Suspect]
     Indication: CANCER PAIN
     Dosage: SEE IMAGE, TRANSDERMAL
     Route: 062
     Dates: start: 20060314
  9. ARIMIDEX (ANASTROZOLE) TABLET [Concomitant]
  10. DIOVAN [Concomitant]
  11. LOVASTATIN (LOVASTATIN) TABLET [Concomitant]
  12. HYDROCHLOROTHIAZIDE [Concomitant]
  13. OXYCODONE (OXYCODONE) TABLET [Concomitant]

REACTIONS (5)
  - DRUG ADMINISTRATION ERROR [None]
  - DRUG INEFFECTIVE [None]
  - HYPERSOMNIA [None]
  - NAUSEA [None]
  - WEIGHT DECREASED [None]
